FAERS Safety Report 18065347 (Version 1)
Quarter: 2020Q3

REPORT INFORMATION
  Report Type: Spontaneous
  Country: IT (occurrence: IT)
  Receive Date: 20200724
  Receipt Date: 20200724
  Transmission Date: 20201103
  Serious: Yes (Other)
  Sender: FDA-Public Use
  Company Number: IT-ACCORD-192530

PATIENT
  Age: 76 Year
  Sex: Male

DRUGS (1)
  1. BICALUTAMIDE. [Suspect]
     Active Substance: BICALUTAMIDE
     Indication: PROSTATE CANCER RECURRENT
     Dates: start: 2016

REACTIONS (3)
  - Necrosis [Recovered/Resolved]
  - Abscess sterile [Recovered/Resolved]
  - Meningioma [Recovered/Resolved]

NARRATIVE: CASE EVENT DATE: 2018
